FAERS Safety Report 14776513 (Version 1)
Quarter: 2018Q2

REPORT INFORMATION
  Report Type: Spontaneous
  Country: DK (occurrence: DK)
  Receive Date: 20180418
  Receipt Date: 20180418
  Transmission Date: 20180711
  Serious: Yes (Other)
  Sender: FDA-Public Use
  Company Number: DK-009507513-1804DNK003726

PATIENT
  Age: 50 Year
  Sex: Female

DRUGS (2)
  1. PEGINTRON [Suspect]
     Active Substance: PEGINTERFERON ALFA-2B
     Indication: ESSENTIAL THROMBOCYTHAEMIA
     Dates: start: 20130110, end: 20140901
  2. PLAVIX [Concomitant]
     Active Substance: CLOPIDOGREL BISULFATE
     Indication: THROMBOSIS PROPHYLAXIS
     Dates: start: 2010

REACTIONS (27)
  - Arthralgia [Unknown]
  - Bone pain [Unknown]
  - Pruritus [Unknown]
  - Weight decreased [Unknown]
  - Intervertebral disc protrusion [Unknown]
  - Influenza like illness [Unknown]
  - Hypotension [Unknown]
  - Myalgia [Unknown]
  - Abdominal pain [Unknown]
  - Nausea [Unknown]
  - Decreased appetite [Unknown]
  - Pyrexia [Unknown]
  - Headache [Unknown]
  - Impaired work ability [Unknown]
  - Skin discolouration [Unknown]
  - Skin swelling [Unknown]
  - Dehydration [Recovered/Resolved]
  - Fatigue [Unknown]
  - Splenomegaly [Unknown]
  - Anal fistula [Unknown]
  - Pain [Unknown]
  - Cardiac arrest [Recovered/Resolved]
  - Discomfort [Unknown]
  - Presyncope [Unknown]
  - Volvulus [Unknown]
  - Musculoskeletal discomfort [Unknown]
  - Anaphylactic shock [Recovered/Resolved]

NARRATIVE: CASE EVENT DATE: 201301
